FAERS Safety Report 6316212-6 (Version None)
Quarter: 2009Q3

REPORT INFORMATION
  Report Type: 
  Country: None (occurrence: None)
  Receive Date: 20090820
  Receipt Date: 20090814
  Transmission Date: 20100115
  Serious: Yes (Other)
  Sender: FDA-Public Use
  Company Number: US-ASTRAZENECA-2009SE06356

PATIENT
  Age: 666 Month
  Sex: Male
  Weight: 113.4 kg

DRUGS (2)
  1. SEROQUEL [Suspect]
     Indication: BIPOLAR DISORDER
     Route: 048
     Dates: start: 20061201
  2. VALPROIC ACID [Concomitant]
     Indication: ANTIDEPRESSANT THERAPY
     Dates: start: 20061201

REACTIONS (1)
  - LUNG NEOPLASM MALIGNANT [None]
